FAERS Safety Report 16924591 (Version 1)
Quarter: 2019Q4

REPORT INFORMATION
  Report Type: Spontaneous
  Country: US (occurrence: US)
  Receive Date: 20190823
  Receipt Date: 20190823
  Transmission Date: 20200122
  Serious: Yes (Hospitalization)
  Sender: FDA-Public Use
  Company Number: None

PATIENT
  Age: 70 Year
  Sex: Male

DRUGS (1)
  1. RIVAROXABAN [Suspect]
     Active Substance: RIVAROXABAN
     Indication: ATRIAL FIBRILLATION
     Route: 048
     Dates: start: 20190206, end: 20190601

REACTIONS (4)
  - Urosepsis [None]
  - Cystitis haemorrhagic [None]
  - Haemoglobin decreased [None]
  - Haematuria [None]

NARRATIVE: CASE EVENT DATE: 20190601
